FAERS Safety Report 24115103 (Version 2)
Quarter: 2025Q3

REPORT INFORMATION
  Report Type: Spontaneous
  Country: US (occurrence: US)
  Receive Date: 20240721
  Receipt Date: 20250718
  Transmission Date: 20251021
  Serious: No
  Sender: NOVO NORDISK
  Company Number: US-NOVOPROD-1165351

PATIENT
  Sex: Female

DRUGS (1)
  1. WEGOVY [Suspect]
     Active Substance: SEMAGLUTIDE
     Indication: Weight control
     Route: 058
     Dates: start: 202305

REACTIONS (4)
  - Swelling [Recovered/Resolved]
  - Injection site pain [Recovered/Resolved]
  - Injection site discharge [Unknown]
  - Needle issue [Unknown]
